FAERS Safety Report 5414907-X (Version None)
Quarter: 2007Q3

REPORT INFORMATION
  Report Type: 
  Country: None (occurrence: None)
  Receive Date: 20070813
  Receipt Date: 20070813
  Transmission Date: 20080115
  Serious: Yes (Other)
  Sender: FDA-Public Use
  Company Number: None

PATIENT
  Age: 49 Year
  Sex: Male
  Weight: 93.441 kg

DRUGS (2)
  1. DEPAKOTE [Suspect]
     Dosage: 1500MG NIGHTLY
     Dates: start: 20070601
  2. DEPAKOTE [Suspect]
     Dosage: 1500MG NIGHTLY
     Dates: start: 20070701

REACTIONS (5)
  - BLOOD PRESSURE DECREASED [None]
  - DYSPNOEA [None]
  - RASH [None]
  - SLUGGISHNESS [None]
  - SOMNOLENCE [None]
